FAERS Safety Report 10681652 (Version 1)
Quarter: 2014Q4

REPORT INFORMATION
  Report Type: Spontaneous
  Country: CN (occurrence: None)
  Receive Date: 20141224
  Receipt Date: 20141224
  Transmission Date: 20150529
  Serious: Yes (Other)
  Sender: FDA-Public Use
  Company Number: COR_00200_2014

PATIENT

DRUGS (2)
  1. PACLITAXEL (PACLITAXEL) [Suspect]
     Active Substance: PACLITAXEL
     Indication: NON-SMALL CELL LUNG CANCER
     Dosage: 175 MG/M2, 1X/3 WEEKS, OVER 3 HOURS, UP TO 4 TO 6 CYCLES, INTRVENOUS (NOT OTHERWISE SPECIFIED )
     Route: 042
  2. CARBOPLATIN (CARBOPLATIN) [Suspect]
     Active Substance: CARBOPLATIN
     Indication: NON-SMALL CELL LUNG CANCER
     Dosage: AUC = 5, OVER 1 HOUR, EV ERY 3 WEEKS, UP TO 4 TO 6 CYCLES, INTRAVENOUS (NOT OTHERWISE SPECIDIED)
     Route: 042

REACTIONS (1)
  - Anaphylactic shock [None]
